FAERS Safety Report 5009947-9 (Version None)
Quarter: 2006Q2

REPORT INFORMATION
  Report Type: 
  Country: None (occurrence: None)
  Receive Date: 20060522
  Receipt Date: 20060511
  Transmission Date: 20061013
  Serious: No
  Sender: FDA-Public Use
  Company Number: 06H-155-0308148-00

PATIENT

DRUGS (1)
  1. ATRACURIUM INJECTION (ATRACURIUM BESYLATE INJECTION) (ATRACURIUM BESYL [Suspect]
     Indication: ANAESTHESIA

REACTIONS (4)
  - APNOEA [None]
  - DRUG ADMINISTRATION ERROR [None]
  - MEDICATION ERROR [None]
  - WRONG DRUG ADMINISTERED [None]
